FAERS Safety Report 5210914-0 (Version None)
Quarter: 2007Q1

REPORT INFORMATION
  Report Type: 
  Country: None (occurrence: None)
  Receive Date: 20070117
  Receipt Date: 20070111
  Transmission Date: 20070707
  Serious: Yes (Death)
  Sender: FDA-Public Use
  Company Number: DE-BOEHRINGER INGELHEIM GMBH, GERMANY-2006-DE-06286DE

PATIENT
  Sex: Female
  Weight: 101 kg

DRUGS (7)
  1. MICARDIS [Suspect]
     Indication: ESSENTIAL HYPERTENSION
     Dates: start: 20050118
  2. MICARDIS [Suspect]
     Dates: start: 20050215
  3. BETA BLOCKING AGENTS [Concomitant]
     Indication: HYPERTENSION
  4. DIURETICS [Concomitant]
     Indication: HYPERTENSION
  5. CALCIUM ANTAGONIST [Concomitant]
     Indication: HYPERTENSION
  6. STATIN [Concomitant]
     Indication: METABOLIC DISORDER
  7. ANTI-DIABETICS [Concomitant]
     Indication: DIABETES MELLITUS

REACTIONS (1)
  - INJURY ASPHYXIATION [None]
